FAERS Safety Report 24965540 (Version 1)
Quarter: 2025Q1

REPORT INFORMATION
  Report Type: Spontaneous
  Country: US (occurrence: None)
  Receive Date: 20250213
  Receipt Date: 20250213
  Transmission Date: 20250409
  Serious: No
  Sender: FDA-CTU
  Company Number: None

PATIENT
  Age: 21 Year
  Sex: Female

DRUGS (2)
  1. IMODIUM [Suspect]
     Active Substance: LOPERAMIDE HYDROCHLORIDE
     Indication: Diarrhoea
     Route: 048
     Dates: start: 20250210, end: 20250210
  2. IMODIUM [Suspect]
     Active Substance: LOPERAMIDE HYDROCHLORIDE
     Indication: Food poisoning

REACTIONS (8)
  - Abdominal pain [None]
  - Myalgia [None]
  - Decreased appetite [None]
  - Eating disorder [None]
  - Vomiting [None]
  - Nausea [None]
  - Somnolence [None]
  - Brain fog [None]

NARRATIVE: CASE EVENT DATE: 20250211
